FAERS Safety Report 17445925 (Version 2)
Quarter: 2020Q3

REPORT INFORMATION
  Report Type: Report from Study
  Country: JP (occurrence: JP)
  Receive Date: 20200221
  Receipt Date: 20200929
  Transmission Date: 20201102
  Serious: Yes (Disabling)
  Sender: FDA-Public Use
  Company Number: JP-PFIZER INC-2020074091

PATIENT
  Age: 77 Year
  Sex: Male
  Weight: 60 kg

DRUGS (9)
  1. METHOTREXATE. [Suspect]
     Active Substance: METHOTREXATE
     Dosage: 10 MG, WEEKLY
     Dates: start: 20160726, end: 20160920
  2. EDIROL [Suspect]
     Active Substance: ELDECALCITOL
     Dosage: UNK
  3. METHOTREXATE. [Suspect]
     Active Substance: METHOTREXATE
     Dosage: 8 MG, WEEKLY
     Dates: start: 20160926, end: 20170703
  4. ENBREL [Suspect]
     Active Substance: ETANERCEPT
     Dosage: UNK
     Dates: start: 20160830, end: 20180406
  5. FOLIAMIN [Suspect]
     Active Substance: FOLIC ACID
     Dosage: UNK
  6. NO SUBJECT DRUG [Suspect]
     Active Substance: UNSPECIFIED INGREDIENT
     Dosage: NO DOSE GIVEN
  7. METHOTREXATE. [Suspect]
     Active Substance: METHOTREXATE
     Indication: RHEUMATOID ARTHRITIS
     Dosage: 8 MG, WEEKLY
     Dates: start: 20110418, end: 20160726
  8. METHOTREXATE. [Suspect]
     Active Substance: METHOTREXATE
     Dosage: 6 MG, WEEKLY
     Dates: start: 20170703, end: 20180602
  9. ACTONEL [Suspect]
     Active Substance: RISEDRONATE SODIUM
     Dosage: UNK

REACTIONS (1)
  - Laryngeal cancer [Recovered/Resolved with Sequelae]

NARRATIVE: CASE EVENT DATE: 20180515
